FAERS Safety Report 24121388 (Version 4)
Quarter: 2024Q3

REPORT INFORMATION
  Report Type: Spontaneous
  Country: DE (occurrence: DE)
  Receive Date: 20240722
  Receipt Date: 20240806
  Transmission Date: 20241017
  Serious: Yes (Life-Threatening, Other)
  Sender: PFIZER
  Company Number: DE-AMGEN-DEUSP2024136769

PATIENT
  Age: 17 Year
  Sex: Female
  Weight: 65 kg

DRUGS (60)
  1. BESPONSA [Suspect]
     Active Substance: INOTUZUMAB OZOGAMICIN
     Indication: B precursor type acute leukaemia
     Dosage: 1.5 MILLIGRAM, QWK
     Route: 065
     Dates: start: 20240422, end: 20240422
  2. BESPONSA [Suspect]
     Active Substance: INOTUZUMAB OZOGAMICIN
     Dosage: 0.9 MILLIGRAM, QWK
     Route: 065
     Dates: start: 20240429, end: 20240506
  3. BLINATUMOMAB [Suspect]
     Active Substance: BLINATUMOMAB
     Indication: B precursor type acute leukaemia
     Dosage: 15 UG/M2
     Route: 042
     Dates: start: 20240618, end: 20240619
  4. BLINATUMOMAB [Suspect]
     Active Substance: BLINATUMOMAB
     Dosage: 5 MICROGRAM/SQ. METER, QD, DOSE REDUCED
     Route: 042
     Dates: start: 20240624
  5. BLINATUMOMAB [Suspect]
     Active Substance: BLINATUMOMAB
     Dosage: 15 MICROGRAM, QD CONTINOUS DOSE INCREASED
     Route: 042
     Dates: start: 20240701, end: 20240704
  6. DIMENHYDRINATE [Concomitant]
     Active Substance: DIMENHYDRINATE
     Indication: Precursor B-lymphoblastic lymphoma
     Dosage: UNK
     Route: 042
     Dates: start: 20240426, end: 20240426
  7. DEXAMETHASONE [Concomitant]
     Active Substance: DEXAMETHASONE
     Indication: Seizure
     Dosage: UNK
     Dates: start: 20240417, end: 20240420
  8. DEXAMETHASONE [Concomitant]
     Active Substance: DEXAMETHASONE
     Indication: Precursor B-lymphoblastic lymphoma
     Dosage: UNK
     Dates: start: 20240429
  9. DEXAMETHASONE [Concomitant]
     Active Substance: DEXAMETHASONE
     Indication: Loss of consciousness
     Dosage: UNK
     Dates: start: 20240701, end: 20240704
  10. DEXAMETHASONE [Concomitant]
     Active Substance: DEXAMETHASONE
     Dosage: UNK
     Dates: start: 20240419, end: 20240419
  11. DEXAMETHASONE [Concomitant]
     Active Substance: DEXAMETHASONE
     Dosage: UNK
     Dates: start: 20240418, end: 20240418
  12. DEXAMETHASONE [Concomitant]
     Active Substance: DEXAMETHASONE
     Dosage: UNK
     Dates: start: 20240417, end: 20240417
  13. DEXAMETHASONE [Concomitant]
     Active Substance: DEXAMETHASONE
     Dosage: UNK
     Dates: start: 20240420, end: 20240420
  14. DEXAMETHASONE [Concomitant]
     Active Substance: DEXAMETHASONE
     Dosage: UNK
     Dates: start: 20240701, end: 20240704
  15. POTASSIUM [Concomitant]
     Active Substance: POTASSIUM
     Indication: Precursor B-lymphoblastic lymphoma
     Dosage: UNK
     Route: 048
     Dates: start: 20240428, end: 20240503
  16. MIDAZOLAM HYDROCHLORIDE [Concomitant]
     Active Substance: MIDAZOLAM HYDROCHLORIDE
     Indication: Precursor B-lymphoblastic lymphoma
     Dosage: UNK
     Route: 042
     Dates: start: 20240417, end: 20240417
  17. ONDANSETRON [Concomitant]
     Active Substance: ONDANSETRON
     Indication: Precursor B-lymphoblastic lymphoma
     Dosage: UNK
     Route: 042
     Dates: start: 20240429, end: 20240429
  18. ALLOPURINOL [Concomitant]
     Active Substance: ALLOPURINOL
     Indication: Precursor B-lymphoblastic lymphoma
     Dosage: UNK
     Dates: start: 20240415, end: 20240415
  19. ALLOPURINOL [Concomitant]
     Active Substance: ALLOPURINOL
     Dosage: UNK
     Dates: start: 20240416, end: 20240426
  20. AMBISOME [Concomitant]
     Active Substance: AMPHOTERICIN B
     Indication: Precursor B-lymphoblastic lymphoma
     Dosage: UNK
     Dates: start: 20240510, end: 20240510
  21. AMBISOME [Concomitant]
     Active Substance: AMPHOTERICIN B
     Dosage: UNK
     Route: 042
     Dates: start: 20240419, end: 20240514
  22. AMBISOME [Concomitant]
     Active Substance: AMPHOTERICIN B
     Dosage: UNK
     Route: 042
     Dates: start: 20240514, end: 20240514
  23. AMBISOME [Concomitant]
     Active Substance: AMPHOTERICIN B
     Dosage: UNK
     Route: 042
     Dates: start: 20240514, end: 20240519
  24. AMBISOME [Concomitant]
     Active Substance: AMPHOTERICIN B
     Dosage: UNK
     Route: 042
     Dates: start: 20240515, end: 20240516
  25. AMBISOME [Concomitant]
     Active Substance: AMPHOTERICIN B
     Dosage: UNK
     Route: 042
     Dates: start: 20240517, end: 20240517
  26. VANCOMYCIN [Concomitant]
     Active Substance: VANCOMYCIN
     Indication: Precursor B-lymphoblastic lymphoma
     Dosage: UNK
     Route: 042
     Dates: start: 20240426, end: 20240426
  27. VANCOMYCIN [Concomitant]
     Active Substance: VANCOMYCIN
     Dosage: UNK
     Route: 042
     Dates: start: 20240427, end: 20240427
  28. VANCOMYCIN [Concomitant]
     Active Substance: VANCOMYCIN
     Dosage: UNK
     Route: 042
     Dates: start: 20240428, end: 20240501
  29. VANCOMYCIN [Concomitant]
     Active Substance: VANCOMYCIN
     Dosage: UNK
     Route: 042
     Dates: start: 20240502, end: 20240502
  30. CASPOFUNGIN [Concomitant]
     Active Substance: CASPOFUNGIN
     Indication: Precursor B-lymphoblastic lymphoma
     Dosage: UNK
     Route: 042
     Dates: start: 20240501, end: 20240501
  31. CASPOFUNGIN [Concomitant]
     Active Substance: CASPOFUNGIN
     Dosage: UNK
     Route: 042
     Dates: start: 20240502, end: 20240506
  32. METAMIZOL [Concomitant]
     Active Substance: METAMIZOLE SODIUM
     Indication: Precursor B-lymphoblastic lymphoma
     Dosage: UNK
     Route: 042
     Dates: start: 20240415, end: 20240419
  33. METAMIZOL [Concomitant]
     Active Substance: METAMIZOLE SODIUM
     Dosage: UNK
     Route: 042
     Dates: start: 20240422, end: 20240422
  34. METAMIZOL [Concomitant]
     Active Substance: METAMIZOLE SODIUM
     Dosage: UNK
     Route: 042
     Dates: start: 20240419, end: 20240419
  35. METAMIZOL [Concomitant]
     Active Substance: METAMIZOLE SODIUM
     Dosage: UNK
     Route: 042
     Dates: start: 20240418, end: 20240418
  36. METAMIZOL [Concomitant]
     Active Substance: METAMIZOLE SODIUM
     Dosage: UNK
     Route: 042
     Dates: start: 20240417, end: 20240417
  37. BISACODYL [Concomitant]
     Active Substance: BISACODYL
     Indication: Precursor B-lymphoblastic lymphoma
     Dosage: UNK
     Route: 048
     Dates: start: 20240427, end: 20240428
  38. LACTATED RINGERS SOLUTION [Concomitant]
     Active Substance: CALCIUM CHLORIDE\POTASSIUM CHLORIDE\SODIUM CHLORIDE\SODIUM LACTATE
     Indication: Precursor B-lymphoblastic lymphoma
     Dosage: UNK
     Route: 042
     Dates: start: 20240423, end: 20240423
  39. FUROSEMIDE [Concomitant]
     Active Substance: FUROSEMIDE
     Indication: Precursor B-lymphoblastic lymphoma
     Dosage: UNK
     Route: 042
     Dates: start: 20240415, end: 20240418
  40. FUROSEMIDE [Concomitant]
     Active Substance: FUROSEMIDE
     Dosage: UNK
     Route: 042
     Dates: start: 20240420, end: 20240420
  41. FUROSEMIDE [Concomitant]
     Active Substance: FUROSEMIDE
     Dosage: UNK
     Route: 042
     Dates: start: 20240424, end: 20240424
  42. TAZOBACTAM [Concomitant]
     Active Substance: TAZOBACTAM
     Indication: Precursor B-lymphoblastic lymphoma
     Dosage: UNK
     Route: 042
     Dates: start: 20240422, end: 20240422
  43. TAZOBACTAM [Concomitant]
     Active Substance: TAZOBACTAM
     Dosage: UNK
     Route: 042
     Dates: start: 20240423, end: 20240502
  44. METHOTREXATE SODIUM [Concomitant]
     Active Substance: METHOTREXATE SODIUM
     Indication: Precursor B-lymphoblastic lymphoma
     Dosage: UNK
     Route: 037
     Dates: start: 20240618
  45. TRENANTONE [Concomitant]
     Active Substance: LEUPROLIDE ACETATE
     Indication: Precursor B-lymphoblastic lymphoma
     Dosage: UNK
     Route: 048
     Dates: start: 20240416, end: 20240416
  46. ACETAMINOPHEN [Concomitant]
     Active Substance: ACETAMINOPHEN
     Indication: Precursor B-lymphoblastic lymphoma
     Dosage: UNK
     Route: 042
     Dates: start: 20240422, end: 20240422
  47. ACETAMINOPHEN [Concomitant]
     Active Substance: ACETAMINOPHEN
     Dosage: UNK
     Route: 042
     Dates: start: 20240427, end: 20240504
  48. ACETAMINOPHEN [Concomitant]
     Active Substance: ACETAMINOPHEN
     Dosage: UNK
     Route: 042
     Dates: start: 20240428, end: 20240428
  49. ACETAMINOPHEN [Concomitant]
     Active Substance: ACETAMINOPHEN
     Dosage: UNK
     Route: 042
     Dates: start: 20240503, end: 20240503
  50. ACETAMINOPHEN [Concomitant]
     Active Substance: ACETAMINOPHEN
     Dosage: UNK
     Route: 042
     Dates: start: 20240504, end: 20240504
  51. ACETAMINOPHEN [Concomitant]
     Active Substance: ACETAMINOPHEN
     Dosage: UNK
     Route: 042
     Dates: start: 20240427, end: 20240427
  52. ACETAMINOPHEN [Concomitant]
     Active Substance: ACETAMINOPHEN
     Dosage: UNK
     Route: 042
     Dates: start: 20240429, end: 20240501
  53. ACETAMINOPHEN [Concomitant]
     Active Substance: ACETAMINOPHEN
     Dosage: UNK
     Route: 042
     Dates: start: 20240502, end: 20240502
  54. POLYETHYLENE GLYCOLS [Concomitant]
     Active Substance: POLYETHYLENE GLYCOLS
     Indication: Precursor B-lymphoblastic lymphoma
     Dosage: UNK
     Route: 048
     Dates: start: 20240426, end: 20240426
  55. LACTULOSE [Concomitant]
     Active Substance: LACTULOSE
     Indication: Precursor B-lymphoblastic lymphoma
     Dosage: UNK
     Route: 048
     Dates: start: 20240503, end: 20240505
  56. LACTULOSE [Concomitant]
     Active Substance: LACTULOSE
     Dosage: UNK
     Route: 048
     Dates: start: 20240506, end: 20240506
  57. LACTULOSE [Concomitant]
     Active Substance: LACTULOSE
     Dosage: UNK
     Route: 048
     Dates: start: 20240507, end: 20240507
  58. SULFAMETHOXAZOLE\TRIMETHOPRIM [Concomitant]
     Active Substance: SULFAMETHOXAZOLE\TRIMETHOPRIM
     Indication: Precursor B-lymphoblastic lymphoma
     Dosage: UNK
     Dates: start: 20240420, end: 20240505
  59. OMEPRAZOLE [Concomitant]
     Active Substance: OMEPRAZOLE
     Indication: Precursor B-lymphoblastic lymphoma
     Dosage: UNK
     Dates: start: 20240418, end: 20240501
  60. ACYCLOVIR [Concomitant]
     Active Substance: ACYCLOVIR
     Indication: Precursor B-lymphoblastic lymphoma
     Dosage: UNK
     Dates: start: 20240506

REACTIONS (4)
  - Seizure [Recovered/Resolved]
  - Loss of consciousness [Recovered/Resolved]
  - Blood brain barrier defect [Unknown]
  - Off label use [Unknown]

NARRATIVE: CASE EVENT DATE: 20240422
